FAERS Safety Report 16753401 (Version 2)
Quarter: 2019Q4

REPORT INFORMATION
  Report Type: Spontaneous
  Country: US (occurrence: US)
  Receive Date: 20190829
  Receipt Date: 20191109
  Transmission Date: 20200122
  Serious: No
  Sender: FDA-Public Use
  Company Number: US-GLAXOSMITHKLINE-US2019AMR154653

PATIENT
  Age: 136 Year
  Sex: Female
  Weight: 94.33 kg

DRUGS (1)
  1. NUCALA [Suspect]
     Active Substance: MEPOLIZUMAB
     Indication: ASTHMA
     Dosage: 100 MG, ONCE
     Route: 058
     Dates: start: 20190411

REACTIONS (5)
  - Muscle spasms [Unknown]
  - Adverse drug reaction [Unknown]
  - Musculoskeletal stiffness [Unknown]
  - Herpes zoster [Recovered/Resolved]
  - Gait disturbance [Unknown]

NARRATIVE: CASE EVENT DATE: 20190821
